FAERS Safety Report 7065180-0 (Version None)
Quarter: 2010Q4

REPORT INFORMATION
  Report Type: 
  Country: None (occurrence: None)
  Receive Date: 20101027
  Receipt Date: 19940831
  Transmission Date: 20110411
  Serious: Yes (Death)
  Sender: FDA-Public Use
  Company Number: DE-ROCHE-940320834001

PATIENT
  Age: 32 Month
  Sex: Female
  Weight: 10.7 kg

DRUGS (23)
  1. ROCEPHIN [Suspect]
     Route: 042
     Dates: start: 19930924, end: 19931007
  2. ROCEPHIN [Suspect]
     Route: 042
     Dates: start: 19930817, end: 19930828
  3. NEUPOGEN [Concomitant]
     Route: 065
     Dates: start: 19930901, end: 19930908
  4. COTRIM [Concomitant]
     Route: 065
     Dates: start: 19930712, end: 19930903
  5. AMPHOTERICIN B [Concomitant]
     Route: 065
     Dates: start: 19930712, end: 19930903
  6. COLISTIN SULFATE [Concomitant]
     Route: 065
     Dates: start: 19930712, end: 19930903
  7. CERTOMYCIN [Concomitant]
     Route: 042
     Dates: start: 19930924, end: 19931007
  8. AMPHOTERICIN B [Concomitant]
     Route: 042
     Dates: start: 19930810
  9. ZOVIRAX [Concomitant]
     Route: 042
     Dates: start: 19930810
  10. BLOOD CELLS, PACKED HUMAN [Concomitant]
     Route: 065
  11. DIURETICS [Concomitant]
     Route: 065
  12. ZOFRAN [Concomitant]
     Route: 065
  13. UROMITEXAN [Concomitant]
     Route: 065
  14. LEUCOVORIN CALCIUM [Concomitant]
     Route: 065
  15. LUMINAL [Concomitant]
     Route: 065
  16. SULTANOL [Concomitant]
     Route: 065
  17. CHEMOTHERAPY [Concomitant]
     Indication: NON-HODGKIN'S LYMPHOMA
     Route: 065
     Dates: start: 19930820, end: 19930825
  18. ANTIPYRETIC [Concomitant]
     Route: 065
  19. TARGOCID [Concomitant]
     Route: 042
     Dates: start: 19930827, end: 19930909
  20. ZIENAM [Concomitant]
     Route: 042
     Dates: start: 19930828, end: 19930910
  21. ERYTHROMYCIN [Concomitant]
     Route: 042
     Dates: start: 19930902, end: 19930916
  22. DOREPEROL [Concomitant]
     Route: 065
  23. PANTHENOL [Concomitant]
     Route: 065

REACTIONS (2)
  - CHOLELITHIASIS [None]
  - NON-HODGKIN'S LYMPHOMA [None]
